FAERS Safety Report 9521012 (Version 1)
Quarter: 2013Q1

REPORT INFORMATION
  Report Type: Spontaneous
  Country: US (occurrence: None)
  Receive Date: 20130305
  Receipt Date: 20130305
  Transmission Date: 20140127
  Serious: Yes (Other)
  Sender: FDA-Public Use
  Company Number: 163-21880-12070594

PATIENT
  Age: 63 Year
  Sex: Female

DRUGS (8)
  1. REVLIMID (LENALIDOMIDE) (CAPSULES) [Suspect]
     Indication: PLASMA CELL MYELOMA
     Route: 048
     Dates: start: 200908
  2. LEVAQUIN [Concomitant]
  3. ASA (ACETYLSALICYLIC ACID) (UNKNOWN) [Concomitant]
  4. GABAPENTIN (GABAPENTIN) (UNKNOWN) (GABAPENTIN) [Concomitant]
  5. POTASSIUM (POTASSIUM) (UNKNOWN) [Concomitant]
  6. SYNTHROID (LEVOTHYROXINE SODIUM) (UNKNOWN) [Concomitant]
  7. CELEBREX (CELECOXIB) (UNKNOWN) [Concomitant]
  8. PLAVIX (CLOPIDOGREL SULFATE) (UNKNOWN) [Concomitant]

REACTIONS (2)
  - Pancytopenia [None]
  - Drug ineffective [None]
